FAERS Safety Report 10392281 (Version 2)
Quarter: 2017Q3

REPORT INFORMATION
  Report Type: Report from Study
  Country: US (occurrence: US)
  Receive Date: 20140819
  Receipt Date: 20170911
  Transmission Date: 20171127
  Serious: Yes (Other)
  Sender: FDA-Public Use
  Company Number: US-ROCHE-1449386

PATIENT
  Sex: Female
  Weight: 47.5 kg

DRUGS (16)
  1. NUTROPIN AQ [Suspect]
     Active Substance: SOMATROPIN
     Dosage: AT BEDTIME
     Route: 058
  2. HYDROCORTISONE. [Concomitant]
     Active Substance: HYDROCORTISONE
     Route: 065
  3. LEVOTHYROXINE. [Concomitant]
     Active Substance: LEVOTHYROXINE
     Dosage: 6 DAYS PER WEEK
     Route: 048
  4. RISPERIDONE. [Concomitant]
     Active Substance: RISPERIDONE
     Route: 065
  5. VITAMIN D3 [Concomitant]
     Active Substance: CHOLECALCIFEROL
     Dosage: 1 CAPSULE
     Route: 048
  6. DIAZEPAM [Concomitant]
     Indication: MUSCLE SPASMS
     Dosage: 2 TABLETS,
     Route: 048
  7. NUTROPIN AQ [Suspect]
     Active Substance: SOMATROPIN
     Indication: HYPOPITUITARISM
     Dosage: 0.11 MG/KG PER WEEK
     Route: 058
  8. LAMOTRIGIN [Concomitant]
     Active Substance: LAMOTRIGINE
     Route: 065
  9. DIVALPROEX [Concomitant]
     Active Substance: DIVALPROEX SODIUM
  10. GABA [Concomitant]
     Active Substance: HOMEOPATHICS
     Route: 048
  11. AMANTADINE. [Concomitant]
     Active Substance: AMANTADINE HYDROCHLORIDE
     Route: 065
  12. CANNABIS [Concomitant]
     Active Substance: CANNABIS SATIVA SUBSP. INDICA TOP
     Route: 048
  13. PREMARIN [Concomitant]
     Active Substance: ESTROGENS, CONJUGATED
     Route: 048
  14. CANNABIS [Concomitant]
     Active Substance: CANNABIS SATIVA SUBSP. INDICA TOP
     Route: 048
  15. LEVOTHYROXINE. [Concomitant]
     Active Substance: LEVOTHYROXINE
     Route: 048
  16. CORTEF [Concomitant]
     Active Substance: HYDROCORTISONE
     Dosage: 1 TABLET
     Route: 048

REACTIONS (13)
  - Weight decreased [Unknown]
  - Nocturia [Unknown]
  - Overweight [Unknown]
  - Increased appetite [Unknown]
  - Seizure [Not Recovered/Not Resolved]
  - Insulin-like growth factor decreased [Unknown]
  - Rash [Unknown]
  - Weight increased [Unknown]
  - Constipation [Unknown]
  - Abnormal behaviour [Unknown]
  - Joint dislocation postoperative [Unknown]
  - Blood glucose decreased [Unknown]
  - Decreased appetite [Unknown]
